FAERS Safety Report 4881988-1 (Version None)
Quarter: 2006Q1

REPORT INFORMATION
  Report Type: 
  Country: None (occurrence: None)
  Receive Date: 20060113
  Receipt Date: 20060113
  Transmission Date: 20060701
  Serious: Yes (Other)
  Sender: FDA-Public Use
  Company Number: None

PATIENT
  Age: 60 Year
  Sex: Female
  Weight: 53.5244 kg

DRUGS (2)
  1. VANCOMYCIN [Suspect]
     Indication: BACTERAEMIA
     Dosage: 1000 MG Q 12 H IV
     Route: 042
     Dates: start: 20060109, end: 20060114
  2. TPN [Concomitant]

REACTIONS (4)
  - BLOOD PRESSURE INCREASED [None]
  - INFUSION RELATED REACTION [None]
  - PRURITUS ANI [None]
  - PRURITUS GENERALISED [None]
